FAERS Safety Report 8067983-2 (Version None)
Quarter: 2012Q1

REPORT INFORMATION
  Report Type: 
  Country: None (occurrence: None)
  Receive Date: 20120124
  Receipt Date: 20110908
  Transmission Date: 20120608
  Serious: No
  Sender: FDA-Public Use
  Company Number: US-AMGEN-USASP2011046026

PATIENT
  Age: 87 Year
  Sex: Female

DRUGS (19)
  1. METOPROLOL TARTRATE [Concomitant]
  2. ASPIRIN [Concomitant]
     Dosage: UNK UNK, QD
  3. ASPIRIN [Concomitant]
  4. VITAMIN E [Concomitant]
     Dosage: UNK, QD
  5. METOPROLOL TARTRATE [Concomitant]
     Dosage: UNK UNK, QD
  6. METAMUCIL                          /00029101/ [Concomitant]
  7. PROLIA [Suspect]
     Indication: OSTEOPOROSIS POSTMENOPAUSAL
     Dosage: 60 MG, Q6MO
     Dates: start: 20110615
  8. ADVAIR DISKUS 100/50 [Concomitant]
     Dosage: UNK UNK, QD
     Dates: end: 20110101
  9. PERFOROMIST [Concomitant]
     Dosage: UNK UNK, QD
     Dates: start: 20110101
  10. VITAMIN D [Concomitant]
  11. PERFOROMIST [Concomitant]
     Dates: start: 20110101
  12. CALCIUM [Concomitant]
     Dosage: UNK
  13. ADVAIR DISKUS 100/50 [Concomitant]
  14. PULMICORT-100 [Concomitant]
     Dosage: UNK UNK, QD
     Dates: start: 20110101
  15. SINGULAIR [Concomitant]
  16. ASCORBIC ACID [Concomitant]
     Dosage: UNK UNK, QD
  17. LEVOXYL [Concomitant]
     Dosage: 1 UNK, QD
  18. VITAMIN D [Concomitant]
     Dosage: 025 IU, UNK
  19. PRILOSEC [Concomitant]
     Dosage: UNK, QD

REACTIONS (5)
  - SKIN BURNING SENSATION [None]
  - TREMOR [None]
  - HYPOAESTHESIA [None]
  - GAIT DISTURBANCE [None]
  - BACK PAIN [None]
